FAERS Safety Report 11823443 (Version 1)
Quarter: 2015Q4

REPORT INFORMATION
  Report Type: Report from Study
  Country: BR (occurrence: BR)
  Receive Date: 20151210
  Receipt Date: 20151210
  Transmission Date: 20160305
  Serious: Yes (Other)
  Sender: FDA-Public Use
  Company Number: BR-ABBVIE-15P-020-1516911-00

PATIENT
  Sex: Female
  Weight: 78 kg

DRUGS (6)
  1. DEPAKOTE ER [Suspect]
     Active Substance: DIVALPROEX SODIUM
     Indication: ABNORMAL BEHAVIOUR
     Route: 048
     Dates: start: 2008
  2. DIOVAN [Concomitant]
     Active Substance: VALSARTAN
     Indication: BLOOD PRESSURE MEASUREMENT
     Dosage: 1 TABLET IN THE MORNING
     Route: 048
     Dates: start: 2005
  3. NATRILIX [Concomitant]
     Active Substance: INDAPAMIDE
     Indication: DIURETIC THERAPY
     Dosage: 1 TABLET IN THE MORNING
     Route: 048
     Dates: start: 2005
  4. NOCTAL [Suspect]
     Active Substance: ESTAZOLAM
     Indication: ANXIOLYTIC THERAPY
     Route: 065
  5. NOCTAL [Suspect]
     Active Substance: ESTAZOLAM
     Indication: SLEEP DISORDER THERAPY
     Dosage: 1 TABLET; AT NIGHT
     Route: 048
     Dates: start: 2009
  6. DEPAKOTE ER [Suspect]
     Active Substance: DIVALPROEX SODIUM
     Dosage: 1 TABLET (500 MG) AT NIGHT
     Route: 048

REACTIONS (3)
  - Off label use [Unknown]
  - Product use issue [Unknown]
  - Cataract [Recovering/Resolving]

NARRATIVE: CASE EVENT DATE: 2008
